FAERS Safety Report 9423233 (Version 1)
Quarter: 2013Q3

REPORT INFORMATION
  Report Type: Spontaneous
  Country: US (occurrence: US)
  Receive Date: 20130726
  Receipt Date: 20130726
  Transmission Date: 20140515
  Serious: Yes (Hospitalization, Other)
  Sender: FDA-Public Use
  Company Number: US-ELI_LILLY_AND_COMPANY-US201307005942

PATIENT
  Age: 55 Year
  Sex: Male
  Weight: 78.01 kg

DRUGS (3)
  1. HUMALOG LISPRO [Suspect]
     Dosage: UNK
     Route: 058
  2. LANTUS [Concomitant]
     Dosage: UNK UNK, EACH EVENING
  3. ZITHROMAX [Concomitant]
     Dosage: UNK

REACTIONS (5)
  - Diabetic ketoacidosis [Unknown]
  - Bronchitis [Unknown]
  - Blood glucose increased [Recovering/Resolving]
  - Infusion site scar [Unknown]
  - Blood glucose decreased [Unknown]
